FAERS Safety Report 7150642-8 (Version None)
Quarter: 2010Q4

REPORT INFORMATION
  Report Type: 
  Country: None (occurrence: None)
  Receive Date: 20101210
  Receipt Date: 20101129
  Transmission Date: 20110411
  Serious: Yes (Other)
  Sender: FDA-Public Use
  Company Number: ES-ELI_LILLY_AND_COMPANY-ES201005006863

PATIENT
  Age: 8 Year
  Sex: Female

DRUGS (1)
  1. HUMATROPE [Suspect]
     Indication: SMALL FOR DATES BABY
     Dosage: 0.035 MG/KG, UNK
     Route: 058
     Dates: start: 20100301, end: 20100401

REACTIONS (1)
  - LIPOMA [None]
